FAERS Safety Report 24596156 (Version 1)
Quarter: 2024Q4

REPORT INFORMATION
  Report Type: Report from Study
  Country: US (occurrence: US)
  Receive Date: 20241110
  Receipt Date: 20241110
  Transmission Date: 20250115
  Serious: Yes (Hospitalization)
  Sender: AUROBINDO
  Company Number: US-AUROBINDO-AUR-APL-2024-054297

PATIENT
  Age: 48 Year
  Sex: Male
  Weight: 94 kg

DRUGS (7)
  1. DAPTOMYCIN [Suspect]
     Active Substance: DAPTOMYCIN
     Indication: Staphylococcal infection
     Dosage: UNK
     Route: 065
  2. COTRIMOXAZOLE [Concomitant]
     Active Substance: SULFAMETHOXAZOLE\TRIMETHOPRIM
     Indication: Staphylococcal infection
     Dosage: UNK
     Route: 065
  3. DOXYCYCLINE [Concomitant]
     Active Substance: DOXYCYCLINE
     Indication: Staphylococcal infection
     Dosage: 100 MG TWICE DAILY
     Route: 065
  4. CEFTAROLINE FOSAMIL [Concomitant]
     Active Substance: CEFTAROLINE FOSAMIL
     Indication: Staphylococcal infection
     Dosage: UNK
     Route: 065
  5. DALBAVANCIN [Concomitant]
     Active Substance: DALBAVANCIN
     Indication: Staphylococcal infection
     Dosage: 1500-MG BIWEEKLY
     Route: 065
  6. VANCOMYCIN [Concomitant]
     Active Substance: VANCOMYCIN
     Indication: Staphylococcal infection
     Dosage: UNK
     Route: 065
  7. MILRINONE [Concomitant]
     Active Substance: MILRINONE
     Indication: Staphylococcal infection
     Dosage: PUMP
     Route: 065

REACTIONS (1)
  - Drug ineffective [Unknown]
